FAERS Safety Report 9479159 (Version 1)
Quarter: 2013Q3

REPORT INFORMATION
  Report Type: Spontaneous
  Country: FR (occurrence: FR)
  Receive Date: 20130827
  Receipt Date: 20130827
  Transmission Date: 20140515
  Serious: Yes (Hospitalization)
  Sender: FDA-Public Use
  Company Number: FR-ELI_LILLY_AND_COMPANY-FR201308007309

PATIENT
  Age: 60 Year
  Sex: Male

DRUGS (6)
  1. EFIENT [Suspect]
     Dosage: UNK
     Route: 048
     Dates: start: 20121214, end: 20121214
  2. VISIPAQUE [Suspect]
     Dosage: 100 ML, UNK
     Route: 042
     Dates: start: 20121214, end: 20121214
  3. IOMERON [Suspect]
     Dosage: 100 ML, UNK
     Route: 042
     Dates: start: 20121214, end: 20121214
  4. ASPEGIC [Suspect]
     Dosage: UNK
     Dates: start: 20121214, end: 20121214
  5. LOVENOX [Suspect]
     Dosage: 4000 IU, UNK
     Route: 058
     Dates: start: 20121214, end: 20121215
  6. RISORDAN [Concomitant]
     Dosage: UNK
     Dates: start: 20121214

REACTIONS (2)
  - Generalised erythema [Recovered/Resolved]
  - Face oedema [Recovered/Resolved]
